FAERS Safety Report 23602870 (Version 2)
Quarter: 2024Q3

REPORT INFORMATION
  Report Type: Report from Study
  Country: DE (occurrence: DE)
  Receive Date: 20240306
  Receipt Date: 20240726
  Transmission Date: 20241017
  Serious: Yes (Hospitalization, Other)
  Sender: ABBVIE
  Company Number: DE-ABBVIE-5662143

PATIENT
  Age: 55 Year
  Sex: Female

DRUGS (5)
  1. HUMIRA [Suspect]
     Active Substance: ADALIMUMAB
     Indication: Ankylosing spondylitis
     Dosage: FORM STRENGTH: 40MG
     Route: 058
     Dates: start: 202407
  2. HUMIRA [Suspect]
     Active Substance: ADALIMUMAB
     Dosage: FORM STRENGTH: 40MG
     Route: 058
     Dates: start: 202310, end: 202401
  3. HUMIRA [Suspect]
     Active Substance: ADALIMUMAB
     Dosage: FORM STRENGTH: 40MG?START DATE 2024
     Route: 058
     Dates: end: 202405
  4. TRAMADOL [Concomitant]
     Active Substance: TRAMADOL\TRAMADOL HYDROCHLORIDE
     Indication: Foot operation
     Route: 048
  5. CELECOXIB [Concomitant]
     Active Substance: CELECOXIB
     Indication: Foot operation
     Route: 048

REACTIONS (12)
  - Foot fracture [Recovering/Resolving]
  - Unevaluable event [Recovered/Resolved]
  - Ligament rupture [Unknown]
  - Surgical failure [Recovered/Resolved]
  - Peripheral swelling [Not Recovered/Not Resolved]
  - Wound [Recovered/Resolved]
  - Bone disorder [Not Recovered/Not Resolved]
  - Gait disturbance [Not Recovered/Not Resolved]
  - Wound infection [Recovered/Resolved]
  - Back pain [Recovered/Resolved]
  - Coronavirus infection [Recovered/Resolved]
  - Skin fissures [Not Recovered/Not Resolved]

NARRATIVE: CASE EVENT DATE: 20231101
